FAERS Safety Report 14133140 (Version 1)
Quarter: 2017Q4

REPORT INFORMATION
  Report Type: Report from Study
  Country: US (occurrence: US)
  Receive Date: 20171027
  Receipt Date: 20171027
  Transmission Date: 20180321
  Serious: Yes (Hospitalization, Other)
  Sender: FDA-Public Use
  Company Number: US-BRISTOL-MYERS SQUIBB COMPANY-BMS-2017-095234

PATIENT
  Age: 57 Year
  Sex: Female
  Weight: 44.7 kg

DRUGS (2)
  1. IPILIMUMAB [Suspect]
     Active Substance: IPILIMUMAB
     Indication: LUNG NEOPLASM MALIGNANT
     Dosage: 45 MG, UNK
     Route: 042
     Dates: start: 20170911, end: 20171017
  2. NIVOLUMAB [Suspect]
     Active Substance: NIVOLUMAB
     Indication: LUNG NEOPLASM MALIGNANT
     Dosage: 140 MG, UNK
     Route: 042
     Dates: start: 20170911, end: 20171017

REACTIONS (3)
  - Hypokalaemia [Recovering/Resolving]
  - Anaemia [Recovering/Resolving]
  - Weight decreased [Unknown]

NARRATIVE: CASE EVENT DATE: 20171011
